FAERS Safety Report 25319935 (Version 1)
Quarter: 2025Q2

REPORT INFORMATION
  Report Type: Spontaneous
  Country: US (occurrence: None)
  Receive Date: 20250515
  Receipt Date: 20250515
  Transmission Date: 20250717
  Serious: Yes (unspecified)
  Sender: FDA-CTU
  Company Number: None

PATIENT
  Age: 64 Year
  Sex: Female

DRUGS (6)
  1. RINVOQ [Suspect]
     Active Substance: UPADACITINIB
     Indication: Dermatitis atopic
     Dosage: FREQUENCY : DAILY;?
  2. ORENCIA [Suspect]
     Active Substance: ABATACEPT
     Indication: Dermatitis atopic
     Dosage: FREQUENCY : WEEKLY;?
  3. DUPIXENT [Suspect]
     Active Substance: DUPILUMAB
  4. JARDIANCE [Suspect]
     Active Substance: EMPAGLIFLOZIN
  5. JANUVIA [Suspect]
     Active Substance: SITAGLIPTIN PHOSPHATE
  6. TRULICITY [Suspect]
     Active Substance: DULAGLUTIDE

REACTIONS (5)
  - Insurance issue [None]
  - Therapy interrupted [None]
  - Eczema [None]
  - Pain [None]
  - Pain in extremity [None]
